FAERS Safety Report 11856248 (Version 3)
Quarter: 2016Q1

REPORT INFORMATION
  Report Type: Report from Study
  Country: US (occurrence: US)
  Receive Date: 20151221
  Receipt Date: 20160211
  Transmission Date: 20160526
  Serious: Yes (Death, Other)
  Sender: FDA-Public Use
  Company Number: US-BAYER-2014-188419

PATIENT
  Age: 62 Year
  Sex: Male

DRUGS (1)
  1. NEXAVAR [Suspect]
     Active Substance: SORAFENIB
     Indication: PRODUCT USED FOR UNKNOWN INDICATION
     Dosage: 200 MG, BID
     Route: 048
     Dates: start: 20141125

REACTIONS (6)
  - Tongue disorder [None]
  - Intentional product misuse [None]
  - Treatment noncompliance [None]
  - Death [Fatal]
  - Dysarthria [None]
  - Diarrhoea [None]

NARRATIVE: CASE EVENT DATE: 201601
